FAERS Safety Report 9735430 (Version 1)
Quarter: 2013Q4

REPORT INFORMATION
  Report Type: Spontaneous
  Country: US (occurrence: US)
  Receive Date: 20131206
  Receipt Date: 20131206
  Transmission Date: 20140711
  Serious: Yes (Hospitalization)
  Sender: FDA-Public Use
  Company Number: US-GILEAD-2009-0022792

PATIENT
  Sex: Male
  Weight: 92.08 kg

DRUGS (25)
  1. LETAIRIS [Suspect]
     Indication: PULMONARY ARTERIAL HYPERTENSION
     Route: 048
     Dates: start: 20090615
  2. VIREAD [Concomitant]
  3. COUMADIN [Concomitant]
  4. SELZENTRY [Concomitant]
  5. METOPROLOL [Concomitant]
  6. PROTONIX [Concomitant]
  7. ESTRADIOL VALERATE [Concomitant]
  8. DEMADEX [Concomitant]
  9. DILTIAZEM [Concomitant]
  10. TRICOR [Concomitant]
  11. NEURONTIN [Concomitant]
  12. REVATIO [Concomitant]
  13. HIDEAWAY OXYGEN SYSTEM [Concomitant]
  14. ZIAGEN [Concomitant]
  15. LANTUS [Concomitant]
  16. NOVOLOG [Concomitant]
  17. TESTOSTERONE [Concomitant]
  18. LORTAB [Concomitant]
  19. PROVIGIL [Concomitant]
  20. VITAMIN B12 [Concomitant]
  21. POTASSIUM CHLORIDE [Concomitant]
  22. CYMBALTA [Concomitant]
  23. LEVOXYL [Concomitant]
  24. OXYCONTIN [Concomitant]
  25. VITAMIN C [Concomitant]

REACTIONS (2)
  - Fluid retention [Unknown]
  - Local swelling [Unknown]
